FAERS Safety Report 9667957 (Version 12)
Quarter: 2014Q3

REPORT INFORMATION
  Report Type: Spontaneous
  Country: US (occurrence: US)
  Receive Date: 20131104
  Receipt Date: 20140902
  Transmission Date: 20150326
  Serious: Yes (Death, Hospitalization)
  Sender: FDA-Public Use
  Company Number: US-GLAXOSMITHKLINE-A1045621A

PATIENT
  Age: 60 Year
  Sex: Female
  Weight: 48.6 kg

DRUGS (3)
  1. LETAIRIS [Concomitant]
     Active Substance: AMBRISENTAN
     Indication: PULMONARY ARTERIAL HYPERTENSION
     Dosage: 10MG UNKNOWN
     Dates: start: 20131012
  2. FLOLAN [Suspect]
     Active Substance: EPOPROSTENOL SODIUM
     Indication: PULMONARY ARTERIAL HYPERTENSION
     Dosage: 4NGKM CONTINUOUS
     Route: 042
     Dates: start: 20131012
  3. ADCIRCA [Concomitant]
     Active Substance: TADALAFIL
     Indication: PULMONARY ARTERIAL HYPERTENSION
     Dosage: 40MG UNKNOWN
     Route: 065
     Dates: start: 20131012

REACTIONS (25)
  - Cough [Not Recovered/Not Resolved]
  - Central venous catheterisation [Unknown]
  - Catheter site erythema [Recovered/Resolved]
  - Fatigue [Recovered/Resolved]
  - Bone pain [Unknown]
  - Feeling abnormal [Not Recovered/Not Resolved]
  - Asthenia [Not Recovered/Not Resolved]
  - Neuropathy peripheral [Unknown]
  - Catheter site haemorrhage [Not Recovered/Not Resolved]
  - Catheter site discharge [Recovered/Resolved]
  - Catheter site pain [Not Recovered/Not Resolved]
  - Oropharyngeal pain [Unknown]
  - Pain in jaw [Unknown]
  - Pulmonary hypertension [Recovered/Resolved]
  - Dyspnoea [Recovered/Resolved]
  - Medical device complication [Unknown]
  - Chest discomfort [Recovered/Resolved]
  - Cardiac arrest [Fatal]
  - Cardiac failure congestive [Recovered/Resolved]
  - Diarrhoea [Not Recovered/Not Resolved]
  - Pain in extremity [Recovered/Resolved]
  - Heart rate increased [Recovered/Resolved]
  - Productive cough [Unknown]
  - Heart rate increased [Unknown]
  - Ascites [Unknown]

NARRATIVE: CASE EVENT DATE: 20131013
